FAERS Safety Report 13571764 (Version 1)
Quarter: 2017Q2

REPORT INFORMATION
  Report Type: Spontaneous
  Country: US (occurrence: US)
  Receive Date: 20170522
  Receipt Date: 20170522
  Transmission Date: 20170830
  Serious: No
  Sender: FDA-Public Use
  Company Number: None

PATIENT
  Age: 71 Year
  Sex: Male
  Weight: 76.8 kg

DRUGS (1)
  1. ERTAPENEM [Suspect]
     Active Substance: ERTAPENEM
     Indication: OSTEOMYELITIS ACUTE
     Route: 042
     Dates: start: 20151021, end: 20151029

REACTIONS (6)
  - Seizure [None]
  - Staring [None]
  - Screaming [None]
  - Cardiac disorder [None]
  - Mouth haemorrhage [None]
  - Unresponsive to stimuli [None]

NARRATIVE: CASE EVENT DATE: 20151028
